FAERS Safety Report 7212290-0 (Version None)
Quarter: 2011Q1

REPORT INFORMATION
  Report Type: 
  Country: None (occurrence: None)
  Receive Date: 20110106
  Receipt Date: 20101223
  Transmission Date: 20110831
  Serious: Yes (Hospitalization)
  Sender: FDA-Public Use
  Company Number: PHEH2009US14498

PATIENT
  Sex: Female
  Weight: 111.11 kg

DRUGS (6)
  1. ZOMETA [Suspect]
     Indication: PROPHYLAXIS
     Dosage: 4 MG, UNK
     Route: 042
     Dates: start: 20091014
  2. FEMARA [Concomitant]
  3. LOVASTATIN [Concomitant]
  4. PERCOCET [Suspect]
     Dosage: UNK,UNK
  5. BENAZEPRIL [Concomitant]
  6. HYDROCHLOROTHIAZIDE [Concomitant]

REACTIONS (11)
  - PERITONITIS [None]
  - SURGERY [None]
  - PAIN IN EXTREMITY [None]
  - ARTHRALGIA [None]
  - NECK PAIN [None]
  - ABDOMINAL HERNIA [None]
  - APPENDICITIS PERFORATED [None]
  - ABDOMINAL ABSCESS [None]
  - MUSCLE DISORDER [None]
  - INFLUENZA LIKE ILLNESS [None]
  - FATIGUE [None]
